FAERS Safety Report 20835840 (Version 1)
Quarter: 2022Q2

REPORT INFORMATION
  Report Type: Spontaneous
  Country: US (occurrence: US)
  Receive Date: 20220516
  Receipt Date: 20220516
  Transmission Date: 20220721
  Serious: No
  Sender: FDA-Public Use
  Company Number: US-BIOMARINAP-US-2022-143094

PATIENT
  Age: 12 Year
  Sex: Male
  Weight: 22.2 kg

DRUGS (1)
  1. VOXZOGO [Suspect]
     Active Substance: VOSORITIDE
     Indication: Product used for unknown indication
     Dosage: 0.32 MILLIGRAM, QD
     Route: 058
     Dates: start: 202203

REACTIONS (1)
  - Injection site pain [Unknown]
